FAERS Safety Report 9250628 (Version 1)
Quarter: 2013Q1

REPORT INFORMATION
  Report Type: Spontaneous
  Country: US (occurrence: None)
  Receive Date: 20130305
  Receipt Date: 20130305
  Transmission Date: 20140127
  Serious: Yes (Hospitalization, Other)
  Sender: FDA-Public Use
  Company Number: 163-21880-12082365 (0)

PATIENT
  Age: 63 Year
  Sex: Female

DRUGS (9)
  1. REVLIMID [Suspect]
     Indication: PLASMA CELL MYELOMA
     Dosage: 25MG, 14 IN 21 D, PO
     Route: 048
     Dates: start: 20120702
  2. ASA (ACETYLSALICYLIC ACID) [Concomitant]
  3. CALTRATE WITH VITAMIN D (LEKOVIT CA) [Concomitant]
  4. MAXZIDE (DYAZIDE) [Concomitant]
  5. TOPROL XL (METOPROLOL SUCCINATE) (100 MILLIGRAM) (METOPROLOL SUCCINATE) [Concomitant]
  6. DECADRON (DEXAMETHASONE) [Concomitant]
  7. VELCADE (BORTEZOMIB) [Concomitant]
  8. XANAX (ALPRAZOLAM) [Concomitant]
  9. AMBIEN (ZOLPIDEM TARTRATE) [Concomitant]

REACTIONS (6)
  - Pyrexia [None]
  - Neutropenia [None]
  - Bacteraemia [None]
  - Deep vein thrombosis [None]
  - Hypertension [None]
  - Herpes zoster [None]
